FAERS Safety Report 5156337-4 (Version None)
Quarter: 2006Q4

REPORT INFORMATION
  Report Type: 
  Country: None (occurrence: None)
  Receive Date: 20061122
  Receipt Date: 20061116
  Transmission Date: 20070319
  Serious: Yes (Hospitalization)
  Sender: FDA-Public Use
  Company Number: GR-GLAXOSMITHKLINE-B0447304A

PATIENT
  Age: 61 Year
  Sex: Male
  Weight: 86 kg

DRUGS (4)
  1. AVANDIA [Suspect]
     Indication: CARDIOVASCULAR DISORDER
     Dosage: 8MG PER DAY
     Route: 048
     Dates: start: 20040404, end: 20051010
  2. MONOSORDIL [Concomitant]
     Indication: CORONARY ARTERY DISEASE
     Dosage: 20MG TWICE PER DAY
  3. DIPEN [Concomitant]
     Indication: CORONARY ARTERY DISEASE
     Dosage: 60MG THREE TIMES PER DAY
  4. ISCOVER [Concomitant]
     Indication: CORONARY ARTERY DISEASE
     Dosage: 75MG FOUR TIMES PER DAY

REACTIONS (1)
  - PULMONARY OEDEMA [None]
